FAERS Safety Report 7733202-7 (Version None)
Quarter: 2011Q3

REPORT INFORMATION
  Report Type: 
  Country: None (occurrence: None)
  Receive Date: 20110907
  Receipt Date: 20110901
  Transmission Date: 20111222
  Serious: Yes (Other)
  Sender: FDA-Public Use
  Company Number: GB-B.I. PHARMACEUTICALS,INC./RIDGEFIELD-2011-UK-00931UK

PATIENT
  Age: 75 Year
  Sex: Female
  Weight: 60 kg

DRUGS (14)
  1. BISOPROLOL FUMARATE [Concomitant]
     Dosage: 7.5 MG
     Route: 048
  2. FUROSEMIDE [Concomitant]
     Dosage: 40 MG
     Route: 048
  3. ALBUTEROL [Concomitant]
     Dosage: 2 DF
     Route: 055
  4. TAZAROTENE [Concomitant]
     Dosage: STRENGTH: 0.1% DOSE: 1DF
  5. BENZALKONIUM CHLORIDE [Concomitant]
     Dosage: 1 DF
     Route: 061
  6. E45 ITCH RELIEF [Concomitant]
     Route: 061
  7. HYDROCORTISONE [Concomitant]
     Dosage: 1 DF
     Route: 061
  8. NYSTATIN [Concomitant]
     Dosage: 1 DF
     Route: 061
  9. PREDNISOLONE [Concomitant]
     Dosage: 5MG 6/1 DAYS
     Route: 048
  10. DIMETICONE [Concomitant]
     Dosage: 1 DF
     Route: 061
  11. SPIRIVA [Suspect]
     Indication: CHRONIC OBSTRUCTIVE PULMONARY DISEASE
     Dosage: 18 MCG
     Route: 055
     Dates: start: 20110807, end: 20110817
  12. DOXYCYCLINE [Concomitant]
     Dosage: 100 MG
     Route: 048
  13. SIMVASTATIN [Concomitant]
     Dosage: 40 MG
     Route: 048
  14. MOMETASONE FUROATE [Concomitant]
     Dosage: STRENGTH: 0.1% DOSE: 1DF
     Route: 061

REACTIONS (2)
  - PAIN IN EXTREMITY [None]
  - ARTHRALGIA [None]
